FAERS Safety Report 25444338 (Version 1)
Quarter: 2025Q2

REPORT INFORMATION
  Report Type: Report from Study
  Country: US (occurrence: US)
  Receive Date: 20250617
  Receipt Date: 20250617
  Transmission Date: 20250716
  Serious: Yes (Hospitalization)
  Sender: ALEXION PHARMACEUTICALS
  Company Number: US-ASTRAZENECA-202506USA010663US

PATIENT

DRUGS (1)
  1. BENRALIZUMAB [Suspect]
     Active Substance: BENRALIZUMAB
     Indication: Asthma
     Dosage: 30 MILLIGRAM PER MILLILITRE, Q8W

REACTIONS (6)
  - Abdominal hernia [Unknown]
  - Sleep disorder [Unknown]
  - Decreased activity [Unknown]
  - Drug ineffective [Unknown]
  - Asthma [Unknown]
  - Heart rate increased [Unknown]
